FAERS Safety Report 19131082 (Version 1)
Quarter: 2021Q2

REPORT INFORMATION
  Report Type: Spontaneous
  Country: US (occurrence: US)
  Receive Date: 20210414
  Receipt Date: 20210414
  Transmission Date: 20210717
  Serious: No
  Sender: FDA-Public Use
  Company Number: US-TOLMAR, INC.-21US025774

PATIENT
  Age: 32 Year
  Sex: Male

DRUGS (2)
  1. KETOCONAZOLE. [Suspect]
     Active Substance: KETOCONAZOLE
     Indication: HAIR GROWTH ABNORMAL
     Dosage: UNK, EVERY 3 DAYS
     Route: 061
  2. ANASTROZOLE. [Concomitant]
     Active Substance: ANASTROZOLE
     Indication: HORMONE REPLACEMENT THERAPY
     Dosage: UNK, EVERY 3 DAYS
     Route: 065

REACTIONS (5)
  - Irritability [Unknown]
  - Disturbance in attention [Recovering/Resolving]
  - Fat tissue increased [Recovering/Resolving]
  - Fluid retention [Recovering/Resolving]
  - Off label use [Unknown]
